FAERS Safety Report 8793937 (Version 3)
Quarter: 2013Q3

REPORT INFORMATION
  Report Type: Spontaneous
  Country: US (occurrence: US)
  Receive Date: 20120917
  Receipt Date: 20130724
  Transmission Date: 20140515
  Serious: Yes (Hospitalization, Disabling, Other)
  Sender: FDA-Public Use
  Company Number: US-009507513-1209USA002320

PATIENT
  Sex: Female

DRUGS (5)
  1. FOSAMAX [Suspect]
     Indication: OSTEOPOROSIS
     Dosage: 70 MG, UNK
     Route: 048
     Dates: end: 20101120
  2. HORMONES (UNSPECIFIED) [Concomitant]
     Indication: THYROID DISORDER
     Dosage: UNK
     Dates: start: 1995
  3. VITAMINS (UNSPECIFIED) [Concomitant]
     Dosage: UNK UNK, QD
     Dates: start: 1997
  4. SYNTHROID [Concomitant]
     Indication: THYROID CANCER
     Dosage: UNK
     Dates: start: 1982
  5. CALCIUM (UNSPECIFIED) [Concomitant]
     Indication: OSTEOPOROSIS
     Dosage: 1200 MG, BID
     Dates: start: 1997

REACTIONS (30)
  - Femur fracture [Not Recovered/Not Resolved]
  - Fall [Not Recovered/Not Resolved]
  - Open reduction of fracture [Not Recovered/Not Resolved]
  - Fracture nonunion [Unknown]
  - Hip arthroplasty [Unknown]
  - Device failure [Unknown]
  - Hip arthroplasty [Unknown]
  - Hip arthroplasty [Unknown]
  - Guillain-Barre syndrome [Unknown]
  - Haemoglobin decreased [Recovering/Resolving]
  - Medical device removal [Unknown]
  - Open reduction of fracture [Unknown]
  - Haemorrhagic anaemia [Unknown]
  - Osteotomy [Unknown]
  - Neurolysis [Unknown]
  - Low turnover osteopathy [Unknown]
  - Foot fracture [Unknown]
  - Procedural nausea [Recovered/Resolved]
  - Hypoaesthesia [Unknown]
  - Lumbar radiculopathy [Unknown]
  - Polyneuropathy [Unknown]
  - Hypertension [Unknown]
  - Fibula fracture [Unknown]
  - Neuralgia [Unknown]
  - Pain [Unknown]
  - Osteoarthritis [Unknown]
  - Bursitis [Unknown]
  - Iron deficiency anaemia [Unknown]
  - Pernicious anaemia [Unknown]
  - Hypothyroidism [Unknown]
